FAERS Safety Report 6846913-2 (Version None)
Quarter: 2010Q3

REPORT INFORMATION
  Report Type: 
  Country: None (occurrence: None)
  Receive Date: 20100712
  Receipt Date: 20100630
  Transmission Date: 20110219
  Serious: Yes (Life-Threatening, Other)
  Sender: FDA-Public Use
  Company Number: 2010P1000070

PATIENT
  Age: 66 Year
  Sex: Female
  Weight: 45 kg

DRUGS (6)
  1. ULTIVA [Suspect]
     Indication: INDUCTION OF ANAESTHESIA
     Dosage: 0.25 MCG/KG/MIN; IV;  2 0.3 MCG/KG/MIN; IV
     Route: 042
  2. ATENOLOL [Suspect]
     Indication: HYPERTENSION
     Dosage: 50 MG;QD
  3. PROPOFOL [Concomitant]
  4. ROCURONTUM [Concomitant]
  5. OXYGEN [Concomitant]
  6. SEVOFLURANE [Concomitant]

REACTIONS (2)
  - CARDIAC ARREST [None]
  - PROCEDURAL COMPLICATION [None]
